FAERS Safety Report 16464353 (Version 2)
Quarter: 2020Q2

REPORT INFORMATION
  Report Type: Spontaneous
  Country: US (occurrence: US)
  Receive Date: 20190621
  Receipt Date: 20200616
  Transmission Date: 20200713
  Serious: No
  Sender: FDA-Public Use
  Company Number: US-ASTELLAS-2019US022088

PATIENT
  Age: 85 Year
  Sex: Male

DRUGS (1)
  1. VESICARE [Suspect]
     Active Substance: SOLIFENACIN SUCCINATE
     Indication: POLLAKIURIA
     Dosage: 10 MG, ONCE DAILY (FOR 2 WEEKS)
     Route: 065
     Dates: start: 201905

REACTIONS (2)
  - Dry mouth [Unknown]
  - Therapeutic product effect incomplete [Unknown]
